FAERS Safety Report 7656040-2 (Version None)
Quarter: 2011Q3

REPORT INFORMATION
  Report Type: 
  Country: None (occurrence: None)
  Receive Date: 20110804
  Receipt Date: 20110720
  Transmission Date: 20111222
  Serious: Yes (Hospitalization, Other)
  Sender: FDA-Public Use
  Company Number: US-ELI_LILLY_AND_COMPANY-US201107006156

PATIENT
  Sex: Female

DRUGS (3)
  1. LORATADINE [Concomitant]
  2. FORTEO [Suspect]
     Indication: OSTEOPOROSIS
     Dosage: 20 UG, QD
     Dates: start: 20110501
  3. DIOVAN [Concomitant]

REACTIONS (8)
  - GAIT DISTURBANCE [None]
  - MENTAL IMPAIRMENT [None]
  - WRIST FRACTURE [None]
  - MOBILITY DECREASED [None]
  - CONTUSION [None]
  - HIP FRACTURE [None]
  - FALL [None]
  - FEELING ABNORMAL [None]
